FAERS Safety Report 20088566 (Version 3)
Quarter: 2023Q2

REPORT INFORMATION
  Report Type: Report from Study
  Country: JP (occurrence: JP)
  Receive Date: 20211119
  Receipt Date: 20230522
  Transmission Date: 20230721
  Serious: Yes (Hospitalization)
  Sender: FDA-Public Use
  Company Number: JP-ABBVIE-19K-087-2985795-00

PATIENT
  Age: 45 Year
  Sex: Female
  Weight: 45 kg

DRUGS (19)
  1. CARBIDOPA\LEVODOPA [Suspect]
     Active Substance: CARBIDOPA\LEVODOPA
     Indication: Parkinson^s disease
     Dosage: MD: 4.0 ML?CD: 2.4 ML/HR ? 16 HRS?ED: 1.5 ML/UNIT ? 1
     Route: 050
     Dates: start: 20190919
  2. CARBIDOPA\LEVODOPA [Suspect]
     Active Substance: CARBIDOPA\LEVODOPA
     Dosage: MD: 7.0 ML?CD: 2.2 ML/HR ? 16 HRS?ED: 1.5 ML/UNIT ? 1
     Route: 050
     Dates: start: 20190906, end: 20190919
  3. ZONISAMIDE [Concomitant]
     Active Substance: ZONISAMIDE
     Indication: Parkinson^s disease
     Route: 048
  4. AMANTADINE HYDROCHLORIDE [Concomitant]
     Active Substance: AMANTADINE HYDROCHLORIDE
     Indication: Parkinson^s disease
     Route: 048
  5. NEUPRO [Concomitant]
     Active Substance: ROTIGOTINE
     Indication: Parkinson^s disease
     Route: 062
  6. ROPINIROLE [Concomitant]
     Active Substance: ROPINIROLE
     Indication: Parkinson^s disease
     Route: 048
  7. ESOMEPRAZOLE MAGNESIUM [Concomitant]
     Active Substance: ESOMEPRAZOLE MAGNESIUM
     Indication: Prophylaxis
     Route: 048
  8. LORAZEPAM [Concomitant]
     Active Substance: LORAZEPAM
     Indication: Product used for unknown indication
     Route: 048
     Dates: end: 20190918
  9. LORAZEPAM [Concomitant]
     Active Substance: LORAZEPAM
     Indication: Product used for unknown indication
     Route: 048
     Dates: start: 20190919
  10. BROTIZOLAM [Concomitant]
     Active Substance: BROTIZOLAM
     Indication: Product used for unknown indication
     Route: 048
  11. CLONAZEPAM [Concomitant]
     Active Substance: CLONAZEPAM
     Indication: Product used for unknown indication
     Route: 048
  12. QUETIAPINE FUMARATE [Concomitant]
     Active Substance: QUETIAPINE FUMARATE
     Indication: Product used for unknown indication
     Route: 048
  13. MAGNESIUM OXIDE [Concomitant]
     Active Substance: MAGNESIUM OXIDE
     Indication: Constipation
     Route: 048
     Dates: end: 20191007
  14. MAGNESIUM OXIDE [Concomitant]
     Active Substance: MAGNESIUM OXIDE
     Indication: Constipation
     Route: 048
     Dates: start: 20191008
  15. CLOSTRIDIUM BUTYRICUM SPORES STRAIN M-55 [Concomitant]
     Active Substance: CLOSTRIDIUM BUTYRICUM SPORES STRAIN M-55
     Indication: Product used for unknown indication
     Route: 048
  16. CARBIDOPA\LEVODOPA [Concomitant]
     Active Substance: CARBIDOPA\LEVODOPA
     Indication: Parkinson^s disease
  17. ZOLPIDEM TARTRATE [Concomitant]
     Active Substance: ZOLPIDEM TARTRATE
     Indication: Product used for unknown indication
  18. ELOBIXIBAT [Concomitant]
     Active Substance: ELOBIXIBAT
     Indication: Product used for unknown indication
     Route: 048
     Dates: start: 20200405, end: 20200617
  19. MENBIT [Concomitant]
     Indication: Product used for unknown indication
     Route: 048
     Dates: start: 20200303, end: 20200303

REACTIONS (16)
  - Dehydration [Recovered/Resolved]
  - Mobility decreased [Unknown]
  - Mental disorder [Unknown]
  - Wrong technique in product usage process [Unknown]
  - Iron deficiency anaemia [Recovered/Resolved]
  - Product use issue [Unknown]
  - Product storage error [Unknown]
  - Malaise [Unknown]
  - Therapeutic product effect decreased [Unknown]
  - Therapeutic product effect delayed [Unknown]
  - On and off phenomenon [Recovered/Resolved]
  - Stoma site infection [Recovered/Resolved]
  - On and off phenomenon [Unknown]
  - Intentional product misuse [Unknown]
  - Drug ineffective [Unknown]
  - Stoma site dermatitis [Recovered/Resolved]

NARRATIVE: CASE EVENT DATE: 20191022
